FAERS Safety Report 13872056 (Version 1)
Quarter: 2017Q3

REPORT INFORMATION
  Report Type: Spontaneous
  Country: US (occurrence: US)
  Receive Date: 20170814
  Receipt Date: 20170814
  Transmission Date: 20171127
  Serious: No
  Sender: FDA-Public Use
  Company Number: None

PATIENT
  Age: 50 Year
  Sex: Female
  Weight: 75.6 kg

DRUGS (2)
  1. BRISDELLE [Suspect]
     Active Substance: PAROXETINE MESYLATE
     Dosage: ?          QUANTITY:1 CAPSULE(S);?
     Route: 048
  2. BENADRYL [Concomitant]
     Active Substance: DIPHENHYDRAMINE HYDROCHLORIDE

REACTIONS (3)
  - Drug ineffective [None]
  - Hot flush [None]
  - Condition aggravated [None]

NARRATIVE: CASE EVENT DATE: 20170501
